FAERS Safety Report 14255810 (Version 3)
Quarter: 2018Q1

REPORT INFORMATION
  Report Type: Spontaneous
  Country: US (occurrence: US)
  Receive Date: 20171206
  Receipt Date: 20180206
  Transmission Date: 20180508
  Serious: Yes (Hospitalization)
  Sender: FDA-Public Use
  Company Number: US-JNJFOC-20171203334

PATIENT
  Age: 22 Year
  Sex: Female
  Weight: 123 kg

DRUGS (7)
  1. DICYCLOMINE [Concomitant]
     Active Substance: DICYCLOMINE HYDROCHLORIDE
     Indication: ABDOMINAL PAIN
     Route: 065
     Dates: start: 20170207
  2. IMODIUM [Concomitant]
     Active Substance: LOPERAMIDE HYDROCHLORIDE
     Indication: DIARRHOEA
     Route: 065
     Dates: start: 20170620
  3. STELARA [Suspect]
     Active Substance: USTEKINUMAB
     Indication: CROHN^S DISEASE
     Route: 058
     Dates: start: 20170420, end: 2017
  4. PREVACID [Concomitant]
     Active Substance: LANSOPRAZOLE
     Indication: GASTROOESOPHAGEAL REFLUX DISEASE
     Route: 065
     Dates: start: 20170207
  5. PROMETHAZINE [Concomitant]
     Active Substance: PROMETHAZINE\PROMETHAZINE HYDROCHLORIDE
     Indication: NAUSEA
     Route: 065
     Dates: start: 20170207
  6. UCERIS [Concomitant]
     Active Substance: BUDESONIDE
     Indication: CROHN^S DISEASE
     Route: 065
     Dates: start: 20170207
  7. STELARA [Suspect]
     Active Substance: USTEKINUMAB
     Indication: CROHN^S DISEASE
     Route: 058

REACTIONS (2)
  - Viral infection [Unknown]
  - Pancytopenia [Recovered/Resolved]

NARRATIVE: CASE EVENT DATE: 20171030
